FAERS Safety Report 10754674 (Version 1)
Quarter: 2015Q1

REPORT INFORMATION
  Report Type: Spontaneous
  Country: US (occurrence: None)
  Receive Date: 20150130
  Receipt Date: 20150130
  Transmission Date: 20150721
  Serious: Yes (Life-Threatening, Disabling)
  Sender: FDA-Public Use
  Company Number: None

PATIENT
  Age: 33 Year
  Sex: Male
  Weight: 68.04 kg

DRUGS (1)
  1. MEFLOQUINE [Suspect]
     Active Substance: MEFLOQUINE
     Indication: MALARIA PROPHYLAXIS
     Dosage: 16 PILLS 1 PER WEEK TAKEN BY MOUTH
     Route: 048
     Dates: start: 20140725, end: 20141215

REACTIONS (14)
  - Malaise [None]
  - Eye irritation [None]
  - Myalgia [None]
  - Anxiety [None]
  - Chills [None]
  - Muscle spasms [None]
  - Confusional state [None]
  - Depression [None]
  - Back pain [None]
  - Pyrexia [None]
  - Irritability [None]
  - Sleep disorder [None]
  - Dizziness [None]
  - Photophobia [None]

NARRATIVE: CASE EVENT DATE: 20150115
